FAERS Safety Report 7068856-4 (Version None)
Quarter: 2010Q4

REPORT INFORMATION
  Report Type: 
  Country: None (occurrence: None)
  Receive Date: 20101028
  Receipt Date: 20101022
  Transmission Date: 20110411
  Serious: Yes (Hospitalization, Disabling)
  Sender: FDA-Public Use
  Company Number: FR-ALLERGAN-1013165US

PATIENT
  Age: 48 Year
  Sex: Female
  Weight: 50 kg

DRUGS (3)
  1. OZURDEX [Suspect]
     Indication: RETINAL VEIN OCCLUSION
     Dosage: 0.7 MG, SINGLE
     Route: 031
     Dates: start: 20100930, end: 20100930
  2. PARACETAMOL [Concomitant]
     Indication: ARTHRALGIA
     Dosage: 500 MG, TID
     Route: 048
     Dates: start: 20100401
  3. NEUROLEPTICS (DETAILS UNSPECIFIED) [Concomitant]
     Indication: PRODUCT USED FOR UNKNOWN INDICATION
     Dosage: UNK

REACTIONS (6)
  - BRADYCARDIA [None]
  - HYPOTENSION [None]
  - MALAISE [None]
  - PULSE PRESSURE DECREASED [None]
  - TACHYCARDIA [None]
  - VERTIGO [None]
